FAERS Safety Report 6498035-0 (Version None)
Quarter: 2009Q4

REPORT INFORMATION
  Report Type: 
  Country: None (occurrence: None)
  Receive Date: 20091215
  Receipt Date: 20091207
  Transmission Date: 20100525
  Serious: Yes (Hospitalization, Other)
  Sender: FDA-Public Use
  Company Number: PHHO2009BE10634

PATIENT
  Sex: Female

DRUGS (10)
  1. AFINITOR [Suspect]
     Indication: TRANSITIONAL CELL CARCINOMA
     Dosage: 10MG, DAILY
     Route: 048
     Dates: start: 20090616, end: 20090714
  2. AFINITOR [Suspect]
     Dosage: 5MG, DAILY
     Route: 048
     Dates: start: 20090715, end: 20090821
  3. AMLODIPINE [Concomitant]
  4. OMEPRAZOLE [Concomitant]
  5. ATENOLOL [Concomitant]
  6. LIPITOR [Concomitant]
  7. MECLIZINE HCL [Concomitant]
  8. COVERSYL [Concomitant]
  9. SEROXAT [Concomitant]
  10. CORUNO [Concomitant]

REACTIONS (3)
  - BACK PAIN [None]
  - CONCOMITANT DISEASE PROGRESSION [None]
  - THROMBOCYTOPENIA [None]
